FAERS Safety Report 8455716-7 (Version None)
Quarter: 2012Q2

REPORT INFORMATION
  Report Type: 
  Country: None (occurrence: None)
  Receive Date: 20120621
  Receipt Date: 20120612
  Transmission Date: 20120825
  Serious: Yes (Other)
  Sender: FDA-Public Use
  Company Number: US-ASTRAZENECA-2011SE53914

PATIENT
  Age: 66 Year
  Sex: Male

DRUGS (4)
  1. ATENOLOL [Suspect]
     Route: 065
  2. RHINOCORT [Suspect]
     Route: 045
  3. ATACAND HCT [Suspect]
     Route: 048
  4. ATACAND [Suspect]
     Route: 048

REACTIONS (4)
  - DRUG INEFFECTIVE [None]
  - BLOOD PRESSURE INCREASED [None]
  - CEREBROVASCULAR ACCIDENT [None]
  - BLOOD PRESSURE FLUCTUATION [None]
